FAERS Safety Report 8946971 (Version 4)
Quarter: 2013Q2

REPORT INFORMATION
  Report Type: Spontaneous
  Country: US (occurrence: US)
  Receive Date: 20121205
  Receipt Date: 20130402
  Transmission Date: 20140414
  Serious: No
  Sender: FDA-Public Use
  Company Number: US-009507513-1211USA011542

PATIENT
  Age: 19 Year
  Sex: Female
  Weight: 68 kg

DRUGS (2)
  1. IMPLANON [Suspect]
     Indication: CONTRACEPTION
     Dosage: UNK, LEFT ARM
     Route: 059
     Dates: start: 20100617, end: 20121207
  2. VYVANSE [Concomitant]

REACTIONS (6)
  - Breast mass [Not Recovered/Not Resolved]
  - Mood altered [Not Recovered/Not Resolved]
  - Weight increased [Not Recovered/Not Resolved]
  - Medical device complication [Unknown]
  - Device difficult to use [Unknown]
  - Device dislocation [Unknown]
